FAERS Safety Report 6414578-X (Version None)
Quarter: 2009Q4

REPORT INFORMATION
  Report Type: 
  Country: None (occurrence: None)
  Receive Date: 20091026
  Receipt Date: 20091026
  Transmission Date: 20100525
  Serious: No
  Sender: FDA-Public Use
  Company Number: US-B.I. PHARMACEUTICALS,INC./RIDGEFIELD-2009-BP-00510BP

PATIENT
  Sex: Female

DRUGS (3)
  1. SPIRIVA [Suspect]
     Route: 055
  2. CELEBREX [Suspect]
     Route: 055
  3. CELEBREX [Concomitant]
     Route: 055

REACTIONS (1)
  - WRONG DRUG ADMINISTERED [None]
